FAERS Safety Report 5125095-1 (Version None)
Quarter: 2006Q4

REPORT INFORMATION
  Report Type: 
  Country: None (occurrence: None)
  Receive Date: 20061010
  Receipt Date: 20061010
  Transmission Date: 20070319
  Serious: Yes (Hospitalization)
  Sender: FDA-Public Use
  Company Number: None

PATIENT
  Age: 84 Year
  Sex: Male

DRUGS (9)
  1. NPH INSULIN [Suspect]
     Indication: DIABETES MELLITUS INSULIN-DEPENDENT
     Dosage: 15 UNITS QAM/ 5 UNITS QPM
     Dates: start: 19990401
  2. FUROSEMIDE [Concomitant]
  3. ASPIRIN [Concomitant]
  4. OMEPRAZOLE [Concomitant]
  5. ZOCOR [Concomitant]
  6. DIGOXIN [Concomitant]
  7. FERROUS SULFATE TAB [Concomitant]
  8. LACTOSE [Concomitant]
  9. LISINOPRIL [Concomitant]

REACTIONS (1)
  - MENTAL STATUS CHANGES [None]
